FAERS Safety Report 4785599-8 (Version None)
Quarter: 2005Q3

REPORT INFORMATION
  Report Type: 
  Country: None (occurrence: None)
  Receive Date: 20050929
  Receipt Date: 20050916
  Transmission Date: 20060218
  Serious: Yes (Hospitalization, Other)
  Sender: FDA-Public Use
  Company Number: HQWYE215231AUG05

PATIENT
  Age: 66 Year
  Sex: Male
  Weight: 105.33 kg

DRUGS (14)
  1. RAPAMUNE [Suspect]
     Indication: PROPHYLAXIS AGAINST TRANSPLANT REJECTION
     Dosage: 2MG/3MG 1X PER 1 DAY, ORAL
     Route: 048
     Dates: start: 20050504, end: 20050801
  2. RAPAMUNE [Suspect]
     Indication: PROPHYLAXIS AGAINST TRANSPLANT REJECTION
     Dosage: 2MG/3MG 1X PER 1 DAY, ORAL
     Route: 048
     Dates: start: 20050810, end: 20050823
  3. RAPAMUNE [Suspect]
     Indication: PROPHYLAXIS AGAINST TRANSPLANT REJECTION
     Dosage: 2MG/3MG 1X PER 1 DAY, ORAL
     Route: 048
     Dates: start: 20050826
  4. CELLCEPT [Suspect]
     Indication: PROPHYLAXIS AGAINST TRANSPLANT REJECTION
     Dosage: 750 MG 2X PER 1 DAY ORAL
     Route: 048
     Dates: start: 20050504
  5. PREDNISONE [Suspect]
     Indication: PROPHYLAXIS AGAINST TRANSPLANT REJECTION
     Dosage: 5 MG 1X PER 1 DAY, ORAL TAPERED DOSE STARTING AT 22 MG
     Dates: start: 20050504, end: 20050828
  6. PREDNISONE [Suspect]
     Indication: PROPHYLAXIS AGAINST TRANSPLANT REJECTION
     Dosage: 5 MG 1X PER 1 DAY, ORAL TAPERED DOSE STARTING AT 22 MG
     Dates: start: 20050829, end: 20050907
  7. BACTRIM [Concomitant]
  8. PROCARDIA XL [Concomitant]
  9. LISINOPRIL [Concomitant]
  10. LANTUS [Concomitant]
  11. LEVOBUNOLOL (LEVOBUNOLOL) [Concomitant]
  12. METOPROLOL TARTRATE [Concomitant]
  13. LIPITOR [Concomitant]
  14. ZENAPAX [Concomitant]

REACTIONS (3)
  - DRUG INEFFECTIVE [None]
  - IMMUNOSUPPRESSANT DRUG LEVEL DECREASED [None]
  - KIDNEY TRANSPLANT REJECTION [None]
